FAERS Safety Report 14355493 (Version 1)
Quarter: 2018Q1

REPORT INFORMATION
  Report Type: Spontaneous
  Country: ES (occurrence: ES)
  Receive Date: 20180105
  Receipt Date: 20180105
  Transmission Date: 20180509
  Serious: Yes (Hospitalization)
  Sender: FDA-Public Use
  Company Number: ES-GLAXOSMITHKLINE-ES2017200973

PATIENT
  Age: 61 Year
  Sex: Male
  Weight: 75 kg

DRUGS (2)
  1. TRAZODONA [Suspect]
     Active Substance: TRAZODONE HYDROCHLORIDE
     Indication: PRODUCT USED FOR UNKNOWN INDICATION
     Dosage: 100 MG
     Route: 065
  2. BUPROPION. [Suspect]
     Active Substance: BUPROPION
     Indication: AFFECTIVE DISORDER
     Dosage: 150 MG DAILY, DIMINISHED THE DOSE TO HALF
     Route: 048

REACTIONS (3)
  - Restlessness [Recovered/Resolved]
  - Confusional state [Recovered/Resolved]
  - Clumsiness [Recovered/Resolved]

NARRATIVE: CASE EVENT DATE: 20171122
